FAERS Safety Report 5430701-8 (Version None)
Quarter: 2007Q3

REPORT INFORMATION
  Report Type: 
  Country: None (occurrence: None)
  Receive Date: 20070830
  Receipt Date: 20070827
  Transmission Date: 20080115
  Serious: Yes (Other)
  Sender: FDA-Public Use
  Company Number: DE-AVENTIS-200712251DE

PATIENT

DRUGS (1)
  1. AMARYL [Suspect]
     Dosage: DOSE: NOT REPORTED

REACTIONS (1)
  - MYOCARDIAL INFARCTION [None]
